APPROVED DRUG PRODUCT: LAMOTRIGINE
Active Ingredient: LAMOTRIGINE
Strength: 100MG
Dosage Form/Route: TABLET;ORAL
Application: A077633 | Product #003 | TE Code: AB
Applicant: ZYDUS PHARMACEUTICALS USA INC
Approved: Jan 27, 2009 | RLD: No | RS: No | Type: RX